FAERS Safety Report 25186281 (Version 5)
Quarter: 2025Q2

REPORT INFORMATION
  Report Type: Spontaneous
  Country: JP (occurrence: JP)
  Receive Date: 20250410
  Receipt Date: 20250620
  Transmission Date: 20250717
  Serious: Yes (Hospitalization, Other)
  Sender: TAKEDA
  Company Number: JP-TAKEDA-2025TJP003462

PATIENT
  Age: 18 Year
  Sex: Female
  Weight: 57.9 kg

DRUGS (7)
  1. TRINTELLIX [Suspect]
     Active Substance: VORTIOXETINE HYDROBROMIDE
     Indication: Depression
     Dosage: 20 MILLIGRAM, QD (20 MG X1), DOSE INTERVAL: 1 DAY
     Dates: end: 20250203
  2. TRINTELLIX [Suspect]
     Active Substance: VORTIOXETINE HYDROBROMIDE
     Indication: Product used for unknown indication
     Dosage: 10 MILLIGRAM, QOD DOSE INTERVAL: 2 DAYS
     Dates: start: 20250204
  3. REXULTI [Suspect]
     Active Substance: BREXPIPRAZOLE
     Indication: Depression
     Dosage: 0.5 MG-2 MG, QD
     Dates: start: 20241206, end: 20250128
  4. ESTAZOLAM [Concomitant]
     Active Substance: ESTAZOLAM
     Indication: Product used for unknown indication
  5. ETHINYL ESTRADIOL\LEVONORGESTREL [Concomitant]
     Active Substance: ETHINYL ESTRADIOL\LEVONORGESTREL
     Indication: Product used for unknown indication
  6. URSODIOL [Concomitant]
     Active Substance: URSODIOL
     Indication: Liver disorder
  7. URSODIOL [Concomitant]
     Active Substance: URSODIOL

REACTIONS (2)
  - Hepatitis acute [Recovering/Resolving]
  - Inappropriate schedule of product administration [Unknown]
